FAERS Safety Report 6102831-9 (Version None)
Quarter: 2009Q1

REPORT INFORMATION
  Report Type: 
  Country: None (occurrence: None)
  Receive Date: 20090304
  Receipt Date: 20090217
  Transmission Date: 20090719
  Serious: Yes (Other)
  Sender: FDA-Public Use
  Company Number: US-GENENTECH-278291

PATIENT

DRUGS (2)
  1. ACTIVASE [Suspect]
     Indication: EMPYEMA
     Dosage: 4 MG, QDX3D
  2. LOCAL ANESTHETIC (UNK INGREDIENTS) [Concomitant]
     Indication: SEDATION
     Dosage: UNK

REACTIONS (1)
  - DRUG INEFFECTIVE [None]
